FAERS Safety Report 9072538 (Version 1)
Quarter: 2013Q1

REPORT INFORMATION
  Report Type: Report from Study
  Country: US (occurrence: US)
  Receive Date: 20130129
  Receipt Date: 20130129
  Transmission Date: 20140127
  Serious: No
  Sender: FDA-Public Use
  Company Number: US-ABBOTT-12P-163-0938871-00

PATIENT
  Sex: Male

DRUGS (8)
  1. HUMIRA 40 MG/0.8 ML PEN [Suspect]
     Indication: PSORIASIS
     Route: 058
     Dates: start: 201101, end: 201112
  2. HUMIRA 40 MG/0.8 ML PEN [Suspect]
     Route: 058
     Dates: start: 201201, end: 201203
  3. HUMIRA 40 MG/0.8 ML PEN [Suspect]
     Route: 058
     Dates: start: 201203
  4. ALLOPURINOL [Concomitant]
     Indication: PRODUCT USED FOR UNKNOWN INDICATION
     Dosage: 300MG DAILY
  5. VERAPAMIL [Concomitant]
     Indication: PRODUCT USED FOR UNKNOWN INDICATION
  6. NON PRESCRIPTION GENERIC FORM OF CLARITIN [Concomitant]
     Indication: HYPERSENSITIVITY
     Dosage: DAILY
  7. CLARION [Concomitant]
     Indication: SEASONAL ALLERGY
     Dosage: 1 DAILY AS NEEDED
  8. ENBREL [Concomitant]
     Indication: PSORIASIS

REACTIONS (2)
  - Blood pressure abnormal [Unknown]
  - Psoriasis [Recovered/Resolved]
